FAERS Safety Report 21966973 (Version 1)
Quarter: 2023Q1

REPORT INFORMATION
  Report Type: Spontaneous
  Country: US (occurrence: US)
  Receive Date: 20230208
  Receipt Date: 20230208
  Transmission Date: 20230418
  Serious: No
  Sender: FDA-Public Use
  Company Number: US-TAKEDA-2023TUS013963

PATIENT
  Sex: Male

DRUGS (5)
  1. ENTYVIO [Suspect]
     Active Substance: VEDOLIZUMAB
     Indication: Colitis ulcerative
     Dosage: 300 MILLIGRAM
     Route: 042
     Dates: start: 202209
  2. SORBIC ACID [Concomitant]
     Active Substance: SORBIC ACID
     Dosage: 200 MILLIGRAM, QD
  3. DILTIAZEM [Concomitant]
     Active Substance: DILTIAZEM
     Dosage: 360 MILLIGRAM, QD
  4. FISH OIL [Concomitant]
     Active Substance: FISH OIL
     Dosage: 3000 MILLIGRAM, QD
  5. SODIUM CHLORIDE [Concomitant]
     Active Substance: SODIUM CHLORIDE
     Dosage: UNK

REACTIONS (2)
  - No adverse event [Unknown]
  - Product storage error [Unknown]
